FAERS Safety Report 8947493 (Version 1)
Quarter: 2012Q4

REPORT INFORMATION
  Report Type: Report from Study
  Country: TW (occurrence: TW)
  Receive Date: 20121205
  Receipt Date: 20121205
  Transmission Date: 20130627
  Serious: Yes (Hospitalization)
  Sender: FDA-Public Use
  Company Number: TW-ROCHE-1051834

PATIENT
  Sex: Female
  Weight: 53 kg

DRUGS (11)
  1. HYDROXYCHLOROQUINE [Concomitant]
     Route: 048
  2. SENNOSIDE [Concomitant]
     Route: 048
  3. SULFASALAZINE [Concomitant]
     Route: 048
  4. PREDNISOLONE [Concomitant]
     Route: 048
  5. FOLIC ACID [Concomitant]
     Route: 048
  6. METHOTREXATE [Concomitant]
     Route: 048
  7. ACETAMINOPHEN/TRAMADOL HYDROCHLORIDE [Concomitant]
     Dosage: 37.5/325mg
     Route: 048
  8. ZOLPIDEM TARTRATE [Concomitant]
     Route: 048
  9. CELECOXIB [Concomitant]
     Route: 048
  10. CHLORZOXAZONE W ACETAMINOPHEN [Concomitant]
     Dosage: 250/300mg
     Route: 048
  11. TOCILIZUMAB [Suspect]
     Indication: RHEUMATOID ARTHRITIS
     Route: 042

REACTIONS (1)
  - Alveolitis allergic [Recovered/Resolved]
